FAERS Safety Report 9049570 (Version 1)
Quarter: 2013Q1

REPORT INFORMATION
  Report Type: Other
  Country: DE (occurrence: DE)
  Receive Date: 20130205
  Receipt Date: 20130205
  Transmission Date: 20140127
  Serious: Yes (Other)
  Sender: FDA-Public Use
  Company Number: DE-BRISTOL-MYERS SQUIBB COMPANY-17349739

PATIENT
  Age: 41 Year
  Sex: Female

DRUGS (1)
  1. IPILIMUMAB [Suspect]
     Indication: METASTATIC MALIGNANT MELANOMA
     Dosage: INFUSION

REACTIONS (4)
  - Hypophysitis [Recovered/Resolved]
  - Amenorrhoea [Recovered/Resolved]
  - Hyperprolactinaemia [Recovered/Resolved]
  - Pancreatitis [Recovered/Resolved]
